FAERS Safety Report 8165526-6 (Version None)
Quarter: 2012Q1

REPORT INFORMATION
  Report Type: 
  Country: None (occurrence: None)
  Receive Date: 20120227
  Receipt Date: 20120218
  Transmission Date: 20120608
  Serious: Yes (Other)
  Sender: FDA-Public Use
  Company Number: US-US-EMD SERONO, INC.-7114609

PATIENT
  Sex: Female

DRUGS (5)
  1. REBIF [Suspect]
     Route: 058
     Dates: start: 20120201
  2. GABAPENTIN [Concomitant]
  3. BACLOFEN [Concomitant]
  4. REBIF [Suspect]
     Indication: PRODUCT USED FOR UNKNOWN INDICATION
     Route: 058
     Dates: start: 20120109
  5. REBIF [Suspect]
     Route: 058
     Dates: end: 20120201

REACTIONS (4)
  - PNEUMONIA [None]
  - URINARY TRACT INFECTION [None]
  - MUSCLE SPASMS [None]
  - PYREXIA [None]
